FAERS Safety Report 6869493-4 (Version None)
Quarter: 2010Q3

REPORT INFORMATION
  Report Type: 
  Country: None (occurrence: None)
  Receive Date: 20100722
  Receipt Date: 20080827
  Transmission Date: 20110219
  Serious: No
  Sender: FDA-Public Use
  Company Number: US-PFIZER INC-2008062320

PATIENT
  Sex: Female
  Weight: 54.545 kg

DRUGS (3)
  1. CHANTIX [Suspect]
     Indication: NICOTINE DEPENDENCE
     Route: 048
     Dates: start: 20080522
  2. VITACAL [Concomitant]
  3. HYDROCHLOROTHIAZIDE [Concomitant]

REACTIONS (8)
  - DIZZINESS [None]
  - GENERALISED OEDEMA [None]
  - HEADACHE [None]
  - HEART RATE INCREASED [None]
  - HYPERHIDROSIS [None]
  - NAUSEA [None]
  - PALPITATIONS [None]
  - SYNCOPE [None]
